FAERS Safety Report 25500130 (Version 1)
Quarter: 2025Q3

REPORT INFORMATION
  Report Type: Spontaneous
  Country: EU (occurrence: EU)
  Receive Date: 20250701
  Receipt Date: 20250701
  Transmission Date: 20251021
  Serious: Yes (Life-Threatening, Hospitalization, Other)
  Sender: BRACCO
  Company Number: None

PATIENT
  Age: 68 Year
  Sex: Male

DRUGS (1)
  1. IOMERON [Suspect]
     Active Substance: IOMEPROL
     Dates: start: 20250512, end: 20250512

REACTIONS (7)
  - Anaphylactic shock [Recovering/Resolving]
  - Rash [Recovering/Resolving]
  - Foaming at mouth [Recovered/Resolved]
  - Cardiac arrest [Recovering/Resolving]
  - General physical health deterioration [Recovering/Resolving]
  - Respiratory failure [Recovered/Resolved]
  - Weaning failure [Recovered/Resolved]

NARRATIVE: CASE EVENT DATE: 20250512
